FAERS Safety Report 4517171-9 (Version None)
Quarter: 2004Q4

REPORT INFORMATION
  Report Type: 
  Country: None (occurrence: None)
  Receive Date: 20041202
  Receipt Date: 20041122
  Transmission Date: 20050328
  Serious: Yes (Life-Threatening, Hospitalization)
  Sender: FDA-Public Use
  Company Number: US-MERCK-0411USA03581

PATIENT
  Age: 77 Year
  Sex: Female

DRUGS (2)
  1. ZOCOR [Suspect]
     Indication: BLOOD CHOLESTEROL INCREASED
     Route: 048
  2. TOPROL-XL [Concomitant]
     Route: 065

REACTIONS (2)
  - CHEST PAIN [None]
  - MYALGIA [None]
